FAERS Safety Report 11445537 (Version 1)
Quarter: 2015Q3

REPORT INFORMATION
  Report Type: Spontaneous
  Country: US (occurrence: US)
  Receive Date: 20150902
  Receipt Date: 20150902
  Transmission Date: 20151125
  Serious: Yes (Other)
  Sender: FDA-Public Use
  Company Number: US-PFIZER INC-2015285624

PATIENT
  Age: 48 Year
  Sex: Female
  Weight: 91 kg

DRUGS (8)
  1. LATUDA [Suspect]
     Active Substance: LURASIDONE HYDROCHLORIDE
     Indication: BIPOLAR DISORDER
     Dosage: UNK
  2. PHENERGAN [Suspect]
     Active Substance: PROMETHAZINE HYDROCHLORIDE
     Indication: ANTIALLERGIC THERAPY
     Dosage: UNK
  3. BENADRYL [Suspect]
     Active Substance: DIPHENHYDRAMINE HYDROCHLORIDE
     Indication: INSOMNIA
     Dosage: SOMETIME TAKE HEAVY
  4. VALIUM [Suspect]
     Active Substance: DIAZEPAM
     Dosage: UNK
  5. LATUDA [Suspect]
     Active Substance: LURASIDONE HYDROCHLORIDE
     Indication: DEPRESSION
  6. XANAX [Suspect]
     Active Substance: ALPRAZOLAM
     Indication: EPILEPSY
  7. NEURONTIN [Suspect]
     Active Substance: GABAPENTIN
     Dosage: UNK
  8. XANAX [Suspect]
     Active Substance: ALPRAZOLAM
     Indication: DEPRESSION
     Dosage: 10 MG, UNK

REACTIONS (4)
  - Overdose [Unknown]
  - Condition aggravated [Unknown]
  - Suicide attempt [Unknown]
  - Depression [Unknown]
